FAERS Safety Report 20973753 (Version 4)
Quarter: 2022Q3

REPORT INFORMATION
  Report Type: Report from Study
  Country: IL (occurrence: IL)
  Receive Date: 20220617
  Receipt Date: 20220809
  Transmission Date: 20221027
  Serious: No
  Sender: FDA-Public Use
  Company Number: IL-TEVAIL-2022-IL-2046593

PATIENT
  Age: 56 Year
  Sex: Female
  Weight: 78 kg

DRUGS (21)
  1. FLUOROURACIL [Suspect]
     Active Substance: FLUOROURACIL
     Indication: Pancreatic carcinoma metastatic
     Dosage: C1D1, C1D15, ONCE IN 2 WEEKS, FREQUENCY TIME :CYCLICAL
     Route: 042
     Dates: start: 20220417, end: 20220509
  2. FLUOROURACIL [Suspect]
     Active Substance: FLUOROURACIL
     Dosage: C2D1, ONCE, FREQUENCY TIME :CYCLICAL
     Route: 042
     Dates: start: 20220530, end: 20220530
  3. FLUOROURACIL [Suspect]
     Active Substance: FLUOROURACIL
     Dosage: C2D15 , ONCE, FREQUENCY TIME :CYCLICAL
     Route: 042
     Dates: start: 20220530, end: 20220530
  4. FLUOROURACIL [Suspect]
     Active Substance: FLUOROURACIL
     Dosage: C2D15 (2400 MG/M2,1 ONCE)
     Route: 042
     Dates: start: 20220619
  5. OXALIPLATIN [Suspect]
     Active Substance: OXALIPLATIN
     Indication: Pancreatic carcinoma metastatic
     Dosage: C1D1, C1D15,ONCE IN 2 WEEKS, FREQUENCY TIME :CYCLICAL
     Route: 042
     Dates: start: 20220417, end: 20220509
  6. OXALIPLATIN [Suspect]
     Active Substance: OXALIPLATIN
     Dosage: C2D1, C1D15,ONCE IN 2 WEEKS, FREQUENCY TIME :CYCLICAL
     Route: 042
     Dates: start: 20220530
  7. IRINOTECAN [Suspect]
     Active Substance: IRINOTECAN
     Indication: Pancreatic carcinoma metastatic
     Dosage: C1D1 (1 ONCE), ONCE IN 2 WEEKS, FREQUENCY TIME :CYCLICAL
     Route: 042
     Dates: start: 20220417, end: 20220417
  8. IRINOTECAN [Suspect]
     Active Substance: IRINOTECAN
     Dosage: C2D1 (1 ONCE), ONCE IN 2 WEEKS, FREQUENCY TIME :CYCLICAL
     Route: 042
     Dates: start: 20220530, end: 20220530
  9. IRINOTECAN [Suspect]
     Active Substance: IRINOTECAN
     Dosage: C2D1 (1 ONCE), ONCE IN 2 WEEKS, FREQUENCY TIME :CYCLICAL
     Route: 042
     Dates: start: 20220619, end: 20220619
  10. LEUCOVORIN [Suspect]
     Active Substance: LEUCOVORIN
     Indication: Pancreatic carcinoma metastatic
     Dosage: C1D1,C1D15, ONCE IN 2 WEEKS, FREQUENCY TIME :CYCLICAL
     Route: 042
     Dates: start: 20220417, end: 20220509
  11. BUDIGALIMAB [Suspect]
     Active Substance: BUDIGALIMAB
     Indication: Pancreatic carcinoma metastatic
     Dosage: C1D3, FREQUENCY TIME :CYCLICAL
     Route: 042
     Dates: start: 20220419, end: 20220419
  12. BUDIGALIMAB [Suspect]
     Active Substance: BUDIGALIMAB
     Dosage: C2D3, FREQUENCY TIME :CYCLICAL
     Route: 042
     Dates: start: 20220601, end: 20220601
  13. NALOXONE HYDROCHLORIDE\OXYCODONE HYDROCHLORIDE [Concomitant]
     Active Substance: NALOXONE HYDROCHLORIDE\OXYCODONE HYDROCHLORIDE
     Indication: Back pain
     Dosage: 5 MG,1 AS REQUIRED, ONGOING, FREQUENCY TIME : AS REQUIRED
     Route: 048
     Dates: start: 20220417
  14. NALOXONE HYDROCHLORIDE\OXYCODONE HYDROCHLORIDE [Concomitant]
     Active Substance: NALOXONE HYDROCHLORIDE\OXYCODONE HYDROCHLORIDE
     Indication: Abdominal pain
     Dosage: 10 MG,1 AS REQUIRED, ONGOING, FREQUENCY TIME : AS REQUIRED
     Route: 048
     Dates: start: 20220424
  15. IRON [Concomitant]
     Active Substance: IRON
     Indication: Supplementation therapy
     Dosage: 25 MILLIGRAM DAILY; ONGOING
     Route: 048
     Dates: start: 202201
  16. ZINC+CALCIUM [Concomitant]
     Indication: Supplementation therapy
     Dosage: 1579 MILLIGRAM DAILY; ONGOING
     Route: 048
     Dates: start: 202201
  17. OMEGA 3(FISH OIL) [Concomitant]
     Indication: Supplementation therapy
     Dosage: 1950 MILLIGRAM DAILY; ONGOING
     Route: 048
     Dates: start: 202201
  18. STOPIT [Concomitant]
     Indication: Diarrhoea
     Dosage: 2 MG, 1 AS REQUIRED
     Route: 048
     Dates: start: 20220513
  19. BISMUTH SUBSALICYLATE [Concomitant]
     Active Substance: BISMUTH SUBSALICYLATE
     Indication: Diarrhoea
     Dosage: 262 MG, 1 AS REQUIRED ONGOING
     Route: 048
     Dates: start: 20220517
  20. NAPROXEN [Concomitant]
     Active Substance: NAPROXEN
     Indication: Back pain
     Dosage: 220MILLIGRAM, 1 AS REQUIRED, ONGOING
     Route: 048
     Dates: start: 202203
  21. NAPROXEN [Concomitant]
     Active Substance: NAPROXEN
     Indication: Abdominal pain

REACTIONS (3)
  - Pyrexia [Recovered/Resolved]
  - Diarrhoea [Unknown]
  - Vomiting [Unknown]

NARRATIVE: CASE EVENT DATE: 20220501
